FAERS Safety Report 24397538 (Version 1)
Quarter: 2024Q4

REPORT INFORMATION
  Report Type: Spontaneous
  Country: US (occurrence: US)
  Receive Date: 20241004
  Receipt Date: 20241004
  Transmission Date: 20250115
  Serious: No
  Sender: SANOFI AVENTIS
  Company Number: US-SA-2024SA273456

PATIENT
  Sex: Male

DRUGS (20)
  1. DUPIXENT [Suspect]
     Active Substance: DUPILUMAB
     Indication: Dermatitis atopic
     Dosage: 300 MG, QOW
     Route: 058
  2. FLUOCINONIDE [Concomitant]
     Active Substance: FLUOCINONIDE
  3. TACROLIMUS [Concomitant]
     Active Substance: TACROLIMUS
  4. ACETAMINOPHEN [Concomitant]
     Active Substance: ACETAMINOPHEN
  5. ALBUTEROL [Concomitant]
     Active Substance: ALBUTEROL
  6. DICLOFENAC [Concomitant]
     Active Substance: DICLOFENAC
  7. FAMOTIDINE [Concomitant]
     Active Substance: FAMOTIDINE
  8. FISH OIL [Concomitant]
     Active Substance: FISH OIL
  9. HYDROCHLOROTHIAZIDE [Concomitant]
     Active Substance: HYDROCHLOROTHIAZIDE
  10. MAGNESIUM [Concomitant]
     Active Substance: MAGNESIUM
  11. VITAMINS [Concomitant]
     Active Substance: VITAMINS
  12. POTASSIUM [Concomitant]
     Active Substance: POTASSIUM
  13. Triamcinolon [Concomitant]
  14. VITAMIN A [Concomitant]
     Active Substance: VITAMIN A
  15. VITAMIN B [Concomitant]
     Active Substance: VITAMIN B
  16. VITAMIN B12 [Concomitant]
     Active Substance: CYANOCOBALAMIN
  17. VITAMIN C [Concomitant]
     Active Substance: ASCORBIC ACID
  18. VITAMIN D NOS [Concomitant]
     Active Substance: CHOLECALCIFEROL\ERGOCALCIFEROL
  19. VITAMIN E [Concomitant]
     Active Substance: .ALPHA.-TOCOPHEROL
  20. ZINC [Concomitant]
     Active Substance: ZINC

REACTIONS (6)
  - Sleep disorder due to a general medical condition [Unknown]
  - Eczema [Unknown]
  - Pruritus [Not Recovered/Not Resolved]
  - Dry skin [Not Recovered/Not Resolved]
  - Skin weeping [Recovered/Resolved]
  - Product dose omission in error [Unknown]

NARRATIVE: CASE EVENT DATE: 20240101
